FAERS Safety Report 20313484 (Version 2)
Quarter: 2022Q1

REPORT INFORMATION
  Report Type: Spontaneous
  Country: US (occurrence: US)
  Receive Date: 20220109
  Receipt Date: 20220125
  Transmission Date: 20220423
  Serious: No
  Sender: FDA-Public Use
  Company Number: US-SANOFI-00914179

PATIENT
  Age: 46 Year
  Sex: Female

DRUGS (2)
  1. DUPIXENT [Suspect]
     Active Substance: DUPILUMAB
     Indication: Nasal polyps
     Dosage: 200 MG, QOW
     Dates: start: 202101
  2. COVID-19 VACCINE [Concomitant]
     Indication: COVID-19 immunisation
     Dosage: UNK

REACTIONS (5)
  - Hypoacusis [Unknown]
  - Ear disorder [Unknown]
  - Eustachian tube dysfunction [Unknown]
  - Ear discomfort [Unknown]
  - Product use in unapproved indication [Unknown]
